FAERS Safety Report 25808104 (Version 3)
Quarter: 2025Q4

REPORT INFORMATION
  Report Type: Report from Study
  Country: EU (occurrence: EU)
  Receive Date: 20250916
  Receipt Date: 20251204
  Transmission Date: 20260117
  Serious: Yes (Death, Life-Threatening, Disabling)
  Sender: ABBVIE
  Company Number: EU-ABBVIE-6061218

PATIENT
  Age: 70 Year
  Sex: Male

DRUGS (35)
  1. VENETOCLAX [Suspect]
     Active Substance: VENETOCLAX
     Indication: Acute myeloid leukaemia
     Dosage: CYCLE 1, END OF CYCLE(28 DAYS)
     Route: 048
     Dates: start: 20240520, end: 20240616
  2. VENETOCLAX [Suspect]
     Active Substance: VENETOCLAX
     Indication: Acute myeloid leukaemia
     Dosage: CYCLE 4,END OF CYCLE(28 DAYS)
     Route: 048
     Dates: start: 20240812, end: 20240908
  3. VENETOCLAX [Suspect]
     Active Substance: VENETOCLAX
     Indication: Acute myeloid leukaemia
     Dosage: CYCLE 3, END OF CYCLE(28 DAYS)
     Route: 048
     Dates: start: 20240715, end: 20240811
  4. VENETOCLAX [Suspect]
     Active Substance: VENETOCLAX
     Indication: Acute myeloid leukaemia
     Dosage: CYCLE 2, END OF CYCLE (28 DAYS)
     Route: 048
     Dates: start: 20240617, end: 20240714
  5. LACTULOSE [Concomitant]
     Active Substance: LACTULOSE
     Indication: Constipation
     Dosage: TIME INTERVAL: AS NECESSARY
     Route: 048
     Dates: start: 20240515, end: 20240527
  6. LACTULOSE [Concomitant]
     Active Substance: LACTULOSE
     Indication: Constipation
     Dosage: TIME INTERVAL: AS NECESSARY: 1 OTHER
     Route: 048
     Dates: start: 2024, end: 20241105
  7. CHLORHEXIDINE GLUCONATE [Concomitant]
     Active Substance: CHLORHEXIDINE GLUCONATE
     Indication: Oral infection
     Dosage: 1 OTHER
     Route: 048
     Dates: start: 20240513, end: 20241105
  8. ACYCLOVIR [Concomitant]
     Active Substance: ACYCLOVIR
     Indication: Viral infection
     Route: 048
     Dates: start: 20240513, end: 20241105
  9. AZACITIDINE [Suspect]
     Active Substance: AZACITIDINE
     Indication: Acute myeloid leukaemia
     Dosage: DAILY DOSE (MG/M2 BSA): 75
     Route: 065
     Dates: start: 20240816, end: 20240816
  10. AZACITIDINE [Suspect]
     Active Substance: AZACITIDINE
     Indication: Acute myeloid leukaemia
     Dosage: DAILY DOSE (MG/M2 BSA): 75
     Route: 065
     Dates: start: 20240812, end: 20240814
  11. AZACITIDINE [Suspect]
     Active Substance: AZACITIDINE
     Indication: Acute myeloid leukaemia
     Dosage: DAILY DOSE (MG/M2 BSA): 75
     Route: 065
     Dates: start: 20240715, end: 20240719
  12. AZACITIDINE [Suspect]
     Active Substance: AZACITIDINE
     Indication: Acute myeloid leukaemia
     Dosage: DAILY DOSE (MG/M2 BSA): 75, END OF CYCLE (7 DAYS)
     Route: 065
     Dates: start: 20240722, end: 20240723
  13. AZACITIDINE [Suspect]
     Active Substance: AZACITIDINE
     Indication: Acute myeloid leukaemia
     Dosage: CYCLE 2, DAILY DOSE (MG/M2 BSA): 75
     Route: 065
     Dates: start: 20240617, end: 20240621
  14. AZACITIDINE [Suspect]
     Active Substance: AZACITIDINE
     Indication: Acute myeloid leukaemia
     Dosage: CYCLE 1, DAILY DOSE (MG/M2 BSA): 75, END OF CYCLE (7 DAYS)
     Route: 065
     Dates: start: 20240520, end: 20240526
  15. AZACITIDINE [Suspect]
     Active Substance: AZACITIDINE
     Indication: Acute myeloid leukaemia
     Dosage: CYCLE 3, DAILY DOSE (MG/M2 BSA): 75, END OF CYCLE (7 DAYS)
     Route: 065
     Dates: start: 20240624, end: 20240625
  16. AZACITIDINE [Suspect]
     Active Substance: AZACITIDINE
     Indication: Acute myeloid leukaemia
     Dosage: END OF CYCLE (7 DAYS)
     Route: 065
     Dates: start: 20240819, end: 20240821
  17. ONDANSETRON [Concomitant]
     Active Substance: ONDANSETRON
     Indication: Premedication
     Dosage: TIME INTERVAL: AS NECESSARY: LAST ADMIN DATE: MAY 2024
     Route: 048
     Dates: start: 20240517
  18. ONDANSETRON [Concomitant]
     Active Substance: ONDANSETRON
     Indication: Premedication
     Route: 048
     Dates: start: 20240527, end: 20241105
  19. SUCRALFATE [Concomitant]
     Active Substance: SUCRALFATE
     Indication: Gastrointestinal tract irritation
     Route: 048
     Dates: start: 20240520, end: 20241105
  20. NYSTATIN [Concomitant]
     Active Substance: NYSTATIN
     Indication: Oral candidiasis
     Route: 048
     Dates: start: 20240513, end: 20241105
  21. FOLIC ACID [Concomitant]
     Active Substance: FOLIC ACID
     Indication: Folate deficiency
     Route: 048
     Dates: start: 20240513, end: 20240527
  22. POSACONAZOLE [Concomitant]
     Active Substance: POSACONAZOLE
     Indication: Fungal infection
     Route: 048
     Dates: start: 20240527, end: 20241105
  23. METOCLOPRAMIDE [Concomitant]
     Active Substance: METOCLOPRAMIDE
     Indication: Nausea
     Dosage: TIME INTERVAL: AS NECESSARY: 1 TABLET
     Route: 048
     Dates: start: 2024, end: 20241105
  24. DAPAGLIFLOZIN [Concomitant]
     Active Substance: DAPAGLIFLOZIN
     Indication: Type 2 diabetes mellitus
     Dosage: 850 MG
     Route: 048
     Dates: start: 2018, end: 20241105
  25. POLYETHYLENE GLYCOL [Concomitant]
     Active Substance: POLYETHYLENE GLYCOL
     Indication: Constipation
     Dosage: TIME INTERVAL: AS NECESSARY
     Route: 048
     Dates: start: 20240513, end: 20241105
  26. ESOMEPRAZOLE [Concomitant]
     Active Substance: ESOMEPRAZOLE
     Indication: Gastrooesophageal reflux disease
     Route: 048
     Dates: start: 2024, end: 20241105
  27. LEVOCETIRIZINE [Concomitant]
     Active Substance: LEVOCETIRIZINE
     Indication: Immunosuppression
     Route: 048
     Dates: start: 20240524, end: 20240527
  28. ALLOPURINOL [Concomitant]
     Active Substance: ALLOPURINOL
     Indication: Hyperuricaemia
     Route: 048
     Dates: start: 20240513, end: 20241105
  29. FUROSEMIDE [Concomitant]
     Active Substance: FUROSEMIDE
     Indication: Hypertension
     Dosage: TIME INTERVAL: AS NECESSARY: 12.5 MG
     Route: 048
     Dates: start: 20240610, end: 20240909
  30. AMOXICILLIN\CLAVULANIC ACID [Concomitant]
     Active Substance: AMOXICILLIN\CLAVULANIC ACID
     Indication: Pyrexia
     Dosage: TIME INTERVAL: AS NECESSARY: 875 + 725 MG
     Route: 048
     Dates: start: 20240527, end: 20241105
  31. GLYCERIN [Concomitant]
     Active Substance: GLYCERIN
     Indication: Constipation
     Dosage: TIME INTERVAL: AS NECESSARY
     Route: 054
     Dates: start: 2024, end: 20241105
  32. SEMAGLUTIDE [Concomitant]
     Active Substance: SEMAGLUTIDE
     Indication: Type 2 diabetes mellitus
     Dosage: 0.5 OTHER SUFFICIENT QUANTITY
     Route: 058
     Dates: start: 2018, end: 20241105
  33. ACETAMINOPHEN [Concomitant]
     Active Substance: ACETAMINOPHEN
     Indication: Pain
     Dosage: TIME INTERVAL: AS NECESSARY
     Route: 048
     Dates: start: 2024, end: 20241105
  34. SULFAMETHOXAZOLE\TRIMETHOPRIM [Concomitant]
     Active Substance: SULFAMETHOXAZOLE\TRIMETHOPRIM
     Indication: Bacterial infection
     Dosage: 800+160 MG
     Route: 048
     Dates: start: 20240513, end: 20241105
  35. METFORMIN [Concomitant]
     Active Substance: METFORMIN HYDROCHLORIDE
     Indication: Type 2 diabetes mellitus
     Route: 048
     Dates: start: 2018, end: 20241105

REACTIONS (3)
  - Acute myeloid leukaemia [Fatal]
  - Diarrhoea [Not Recovered/Not Resolved]
  - Vomiting [Recovered/Resolved]

NARRATIVE: CASE EVENT DATE: 20240715
